FAERS Safety Report 4911777-0 (Version None)
Quarter: 2006Q1

REPORT INFORMATION
  Report Type: 
  Country: None (occurrence: None)
  Receive Date: 20060213
  Receipt Date: 20060213
  Transmission Date: 20060701
  Serious: No
  Sender: FDA-Public Use
  Company Number: None

PATIENT
  Sex: Male
  Weight: 66.6788 kg

DRUGS (1)
  1. OMEPRAZOLE [Suspect]
     Indication: GASTROOESOPHAGEAL REFLUX DISEASE
     Dosage: 20 MG  QD   PO
     Route: 048
     Dates: start: 19990101, end: 20060101

REACTIONS (3)
  - HYPOACUSIS [None]
  - INSOMNIA [None]
  - TINNITUS [None]
